FAERS Safety Report 17081036 (Version 1)
Quarter: 2019Q4

REPORT INFORMATION
  Report Type: Spontaneous
  Country: US (occurrence: US)
  Receive Date: 20191126
  Receipt Date: 20191126
  Transmission Date: 20200122
  Serious: No
  Sender: FDA-Public Use
  Company Number: None

PATIENT
  Age: 35 Year
  Sex: Female
  Weight: 75 kg

DRUGS (1)
  1. AIMOVIG [Suspect]
     Active Substance: ERENUMAB-AOOE
     Indication: MIGRAINE
     Dates: start: 20191101, end: 20191126

REACTIONS (4)
  - Panic attack [None]
  - Palpitations [None]
  - Chest pain [None]
  - Anxiety [None]

NARRATIVE: CASE EVENT DATE: 20191126
